FAERS Safety Report 9277800 (Version 2)
Quarter: 2013Q2

REPORT INFORMATION
  Report Type: Report from Study
  Country: AU (occurrence: AU)
  Receive Date: 20130508
  Receipt Date: 20130530
  Transmission Date: 20140414
  Serious: Yes (Hospitalization, Other)
  Sender: FDA-Public Use
  Company Number: PHHY2013AU044231

PATIENT
  Age: 84 Year
  Sex: Male
  Weight: 100 kg

DRUGS (13)
  1. ACLASTA [Suspect]
     Indication: OSTEOPOROTIC FRACTURE
     Dosage: 5 MG, UNK
     Route: 042
     Dates: start: 20120323
  2. ASPIRIN [Concomitant]
     Indication: CARDIOMYOPATHY
     Dosage: 1 DF DAILY
     Route: 048
  3. CALTRATE WITH VITAMIN D [Concomitant]
     Indication: OSTEOPOROSIS
     Dosage: 2 DF DAILY
     Route: 048
  4. COLCHICINE [Concomitant]
     Indication: GOUT
     Dosage: 1 DF, TID PRN
     Route: 048
  5. DOCUSATE SODIUM\SENNOSIDES [Concomitant]
     Indication: CONSTIPATION
     Dosage: 2 DF, BID PRN
     Route: 048
  6. DILATREND [Concomitant]
     Indication: CARDIAC FAILURE CONGESTIVE
     Dosage: 1 DF, UNK
     Route: 048
  7. MOVICOL [Concomitant]
     Indication: CONSTIPATION
     Dosage: 1 DF, BID
     Route: 048
  8. PANADOL OSTEO [Concomitant]
     Indication: OSTEOPOROSIS
     Dosage: 2 DF, TID
     Route: 048
  9. PARIET [Concomitant]
     Indication: GASTROOESOPHAGEAL REFLUX DISEASE
     Dosage: 1 DF DAILY
     Route: 048
  10. PROGOUT [Concomitant]
     Indication: GOUT
     Dosage: 1 DF MANE
     Route: 048
  11. RAMIPRIL [Concomitant]
     Indication: CARDIOMEGALY
     Dosage: 1 DF DAILY
     Route: 048
  12. SPIRACTIN [Concomitant]
     Indication: HYPERTENSION
     Dosage: 1 DF MANE
     Route: 048
  13. TEMAZEPAM [Concomitant]
     Indication: INSOMNIA
     Dosage: 1 DF, NOCTE PRN
     Route: 048

REACTIONS (5)
  - Chest pain [Recovered/Resolved]
  - Headache [Recovered/Resolved]
  - Dyspnoea [Recovered/Resolved]
  - Thoracic vertebral fracture [Unknown]
  - Lumbar vertebral fracture [Unknown]
